FAERS Safety Report 22114373 (Version 1)
Quarter: 2023Q1

REPORT INFORMATION
  Report Type: Report from Study
  Country: US (occurrence: None)
  Receive Date: 20230320
  Receipt Date: 20230320
  Transmission Date: 20230417
  Serious: Yes (Death)
  Sender: FDA-Public Use
  Company Number: US-ROCHE-3313157

PATIENT

DRUGS (2)
  1. VEMURAFENIB [Suspect]
     Active Substance: VEMURAFENIB
     Indication: Pancreatic carcinoma
     Dosage: VEMURAFENIB 720 MG PO BID DAILY GIVEN WITH SORAFENIB 400 MG PO AM AND 200 MG PO PM
     Route: 048
     Dates: start: 20211207
  2. SORAFENIB [Suspect]
     Active Substance: SORAFENIB
     Indication: Pancreatic carcinoma
     Dosage: SORAFENIB 400 MG PO AM AND 200 MG PO PM
     Route: 048

REACTIONS (1)
  - Disease progression [Fatal]

NARRATIVE: CASE EVENT DATE: 20220207
